FAERS Safety Report 4661995-4 (Version None)
Quarter: 2005Q2

REPORT INFORMATION
  Report Type: 
  Country: None (occurrence: None)
  Receive Date: 20050512
  Receipt Date: 20050428
  Transmission Date: 20051028
  Serious: Yes (Other)
  Sender: FDA-Public Use
  Company Number: 2005-05-0103

PATIENT
  Sex: Female

DRUGS (2)
  1. PEG-INTRON [Suspect]
     Indication: HEPATITIS C
     Dosage: SUBCUTANEOUS
     Route: 058
     Dates: start: 20040820, end: 20040820
  2. RIBAVIRIN [Suspect]
     Indication: HEPATITIS C
     Dates: start: 20040820, end: 20040820

REACTIONS (3)
  - HAEMOPTYSIS [None]
  - HEADACHE [None]
  - PYREXIA [None]
